FAERS Safety Report 5245970-7 (Version None)
Quarter: 2007Q1

REPORT INFORMATION
  Report Type: 
  Country: None (occurrence: None)
  Receive Date: 20070221
  Receipt Date: 20070212
  Transmission Date: 20070707
  Serious: Yes (Other)
  Sender: FDA-Public Use
  Company Number: CHNY2007GB00875

PATIENT
  Sex: Male

DRUGS (1)
  1. SCOPODERM TTS (NCH)(HYOSCINE HYDROBROMIDE) UNKNOWN [Suspect]
     Indication: DROOLING
     Dosage: TRANSDERMAL
     Route: 062

REACTIONS (2)
  - CONDITION AGGRAVATED [None]
  - CONVULSION [None]
